FAERS Safety Report 7999831-0 (Version None)
Quarter: 2011Q4

REPORT INFORMATION
  Report Type: 
  Country: None (occurrence: None)
  Receive Date: 20111222
  Receipt Date: 20111214
  Transmission Date: 20120403
  Serious: No
  Sender: FDA-Public Use
  Company Number: US-BIOGENIDEC-2010BI040551

PATIENT
  Sex: Female

DRUGS (2)
  1. TYSABRI [Suspect]
     Indication: MULTIPLE SCLEROSIS
     Route: 042
     Dates: start: 20100820
  2. AVONEX [Concomitant]
     Indication: MULTIPLE SCLEROSIS
     Route: 030

REACTIONS (17)
  - BACK INJURY [None]
  - GENERAL SYMPTOM [None]
  - HEMIPARESIS [None]
  - FATIGUE [None]
  - BALANCE DISORDER [None]
  - FALL [None]
  - HYPERSOMNIA [None]
  - MULTIPLE SCLEROSIS [None]
  - MULTIPLE SCLEROSIS RELAPSE [None]
  - LIGAMENT SPRAIN [None]
  - JOINT INJURY [None]
  - HYPOAESTHESIA [None]
  - TEMPERATURE INTOLERANCE [None]
  - HYPOAESTHESIA ORAL [None]
  - OPTIC NEURITIS [None]
  - MUSCULOSKELETAL DISORDER [None]
  - BACK DISORDER [None]
